FAERS Safety Report 24715773 (Version 1)
Quarter: 2024Q4

REPORT INFORMATION
  Report Type: Spontaneous
  Country: FR (occurrence: FR)
  Receive Date: 20241210
  Receipt Date: 20241210
  Transmission Date: 20250114
  Serious: Yes (Other)
  Sender: SANDOZ
  Company Number: FR-AMGEN-FRASP2024236001

PATIENT
  Age: 8 Year
  Sex: Female

DRUGS (5)
  1. ADALIMUMAB [Suspect]
     Active Substance: ADALIMUMAB
     Dosage: 40 MILLIGRAM, Q2WK
     Route: 065
  2. ADALIMUMAB [Suspect]
     Active Substance: ADALIMUMAB
     Indication: Neurosarcoidosis
     Dosage: 40 MILLIGRAM, Q3WK
     Route: 065
  3. CORTICOSTEROID NOS [Concomitant]
     Active Substance: CORTICOSTEROID NOS
     Indication: Neurosarcoidosis
     Dosage: 1 MILLIGRAM/KILOGRAM
     Route: 065
  4. CORTICOSTEROID NOS [Concomitant]
     Active Substance: CORTICOSTEROID NOS
     Dosage: 5 MILLIGRAM/KILOGRAM
     Route: 065
  5. METHOTREXATE [Concomitant]
     Active Substance: METHOTREXATE
     Indication: Neurosarcoidosis
     Dosage: 10 MILLIGRAM/SQ. METER, Q2WK
     Route: 065

REACTIONS (3)
  - Neurosarcoidosis [Unknown]
  - Drug effective for unapproved indication [Unknown]
  - Off label use [Unknown]
